FAERS Safety Report 4356341-X (Version None)
Quarter: 2004Q2

REPORT INFORMATION
  Report Type: 
  Country: None (occurrence: None)
  Receive Date: 20040506
  Receipt Date: 20040322
  Transmission Date: 20050107
  Serious: Yes (Other)
  Sender: FDA-Public Use
  Company Number: 200310469BFR

PATIENT
  Age: 55 Year
  Sex: Male

DRUGS (2)
  1. STALTOR (CERIVASTATIN) [Suspect]
     Indication: HYPERCHOLESTEROLAEMIA
     Dosage: 0.3 MG, TOTAL DAILY, ORAL
     Route: 048
     Dates: start: 19981030, end: 20010706
  2. AMAREL [Concomitant]

REACTIONS (8)
  - ANGIOPLASTY [None]
  - BALANCE DISORDER [None]
  - DIABETIC COMPLICATION [None]
  - MUSCULAR DYSTROPHY [None]
  - RETINOPATHY [None]
  - TREATMENT NONCOMPLIANCE [None]
  - VISUAL ACUITY REDUCED [None]
  - WEIGHT DECREASED [None]
